FAERS Safety Report 8863004 (Version 1)
Quarter: 2012Q4

REPORT INFORMATION
  Report Type: 
  Country: US (occurrence: US)
  Receive Date: 20121026
  Receipt Date: 20121026
  Transmission Date: 20130627
  Serious: No
  Sender: FDA-Public Use
  Company Number: US-ALLERGAN-1200977US

PATIENT
  Age: 68 Year
  Sex: Female

DRUGS (3)
  1. ALPHAGAN P [Suspect]
     Indication: NORMAL TENSION GLAUCOMA
     Dosage: 2 Gtt, q12h
     Route: 047
     Dates: start: 20120119, end: 20120121
  2. AZOPT [Concomitant]
     Indication: INTRAOCULAR PRESSURE
     Dosage: UNK
     Route: 047
  3. LUMIGAN� 0.01% [Concomitant]
     Indication: INTRAOCULAR PRESSURE
     Dosage: UNK
     Route: 047

REACTIONS (5)
  - Rash papular [Recovering/Resolving]
  - Joint swelling [Recovering/Resolving]
  - Eyelid oedema [Recovered/Resolved]
  - Scleral hyperaemia [Recovered/Resolved]
  - Eye irritation [Recovered/Resolved]
